FAERS Safety Report 6130940-7 (Version None)
Quarter: 2009Q1

REPORT INFORMATION
  Report Type: 
  Country: None (occurrence: None)
  Receive Date: 20090323
  Receipt Date: 20090313
  Transmission Date: 20090719
  Serious: Yes (Hospitalization)
  Sender: FDA-Public Use
  Company Number: LTI2009A00036

PATIENT
  Age: 80 Year
  Sex: Male

DRUGS (1)
  1. ACTOS [Suspect]
     Dosage: ORAL/DAYS
     Route: 048

REACTIONS (3)
  - CARDIAC FAILURE [None]
  - FLUID RETENTION [None]
  - SODIUM RETENTION [None]
